FAERS Safety Report 8130620 (Version 3)
Quarter: 2012Q4

REPORT INFORMATION
  Report Type: 
  Country: JP (occurrence: JP)
  Receive Date: 20110912
  Receipt Date: 20120904
  Transmission Date: 20130627
  Serious: Yes (Other)
  Sender: FDA-Public Use
  Company Number: JP-JNJFOC-20110901843

PATIENT
  Age: 57 Year
  Sex: Male

DRUGS (13)
  1. INVEGA [Suspect]
     Indication: SCHIZOPHRENIA
     Route: 048
  2. INVEGA [Suspect]
     Indication: SCHIZOPHRENIA
     Route: 048
     Dates: start: 20110201
  3. BASEN [Concomitant]
     Route: 048
  4. METHYCOBAL [Concomitant]
     Route: 048
  5. BAYASPIRIN [Concomitant]
     Route: 048
  6. AMARYL [Concomitant]
     Route: 048
  7. ARTIST [Concomitant]
     Route: 048
  8. FLUITRAN [Concomitant]
     Route: 048
  9. LASIX [Concomitant]
     Route: 048
  10. BLOPRESS [Concomitant]
     Route: 048
  11. CARDENALIN [Concomitant]
     Route: 048
  12. AMLODIN [Concomitant]
     Route: 048
  13. RISPERDAL [Concomitant]
     Route: 065

REACTIONS (1)
  - Hyperglycaemia [Recovering/Resolving]
